FAERS Safety Report 13722245 (Version 1)
Quarter: 2017Q3

REPORT INFORMATION
  Report Type: Spontaneous
  Country: US (occurrence: US)
  Receive Date: 20170706
  Receipt Date: 20170706
  Transmission Date: 20171127
  Serious: Yes (Other)
  Sender: FDA-Public Use
  Company Number: PHEH2017US020042

PATIENT
  Age: 54 Year
  Sex: Male

DRUGS (2)
  1. TAFINLAR [Suspect]
     Active Substance: DABRAFENIB MESYLATE
     Indication: MALIGNANT MELANOMA
     Dosage: 150 MG, BID ( CONCENTRATION 75 MG)
     Route: 048
     Dates: start: 20170118, end: 20170313
  2. TAFINLAR [Suspect]
     Active Substance: DABRAFENIB MESYLATE
     Dosage: 100 MG, BID(CONCENTRATION 50 MG)
     Route: 048
     Dates: start: 20170518, end: 20170627

REACTIONS (2)
  - Palmar-plantar erythrodysaesthesia syndrome [Unknown]
  - Blister [Unknown]

NARRATIVE: CASE EVENT DATE: 20170118
